FAERS Safety Report 8107665-1 (Version None)
Quarter: 2012Q1

REPORT INFORMATION
  Report Type: 
  Country: None (occurrence: None)
  Receive Date: 20120202
  Receipt Date: 20120131
  Transmission Date: 20120608
  Serious: Yes (Death)
  Sender: FDA-Public Use
  Company Number: US-TEVA-311298USA

PATIENT
  Sex: Female

DRUGS (4)
  1. LEVOTHYROXINE SODIUM [Concomitant]
     Dosage: 75 MILLIGRAM;
  2. LITHIUM CARBONATE [Concomitant]
     Dosage: 900 MILLIGRAM;
  3. FLUVOXAMINE MALEATE [Concomitant]
  4. CLOZAPINE [Suspect]
     Route: 048

REACTIONS (6)
  - TOXICITY TO VARIOUS AGENTS [None]
  - TOOTH LOSS [None]
  - CHOKING [None]
  - ASPIRATION [None]
  - OBSTRUCTIVE AIRWAYS DISORDER [None]
  - OBESITY [None]
